FAERS Safety Report 6278130-1 (Version None)
Quarter: 2009Q3

REPORT INFORMATION
  Report Type: 
  Country: None (occurrence: None)
  Receive Date: 20090722
  Receipt Date: 20090721
  Transmission Date: 20100115
  Serious: Yes (Death, Other)
  Sender: FDA-Public Use
  Company Number: FR-BRISTOL-MYERS SQUIBB COMPANY-14698443

PATIENT
  Age: 55 Year
  Sex: Male

DRUGS (2)
  1. CETUXIMAB [Suspect]
     Indication: HEAD AND NECK CANCER
     Route: 042
     Dates: start: 20080414, end: 20080505
  2. RADIOTHERAPY [Suspect]
     Indication: HEAD AND NECK CANCER

REACTIONS (6)
  - CHOLESTASIS [None]
  - DERMATITIS [None]
  - FUNGAL SEPSIS [None]
  - MUCOSAL INFLAMMATION [None]
  - PSEUDOMONAL SEPSIS [None]
  - STAPHYLOCOCCAL SEPSIS [None]
